FAERS Safety Report 17032404 (Version 1)
Quarter: 2019Q4

REPORT INFORMATION
  Report Type: Spontaneous
  Country: US (occurrence: US)
  Receive Date: 20191014
  Receipt Date: 20191014
  Transmission Date: 20200122
  Serious: No
  Sender: FDA-Public Use
  Company Number: None

PATIENT
  Age: 64 Year
  Sex: Female

DRUGS (1)
  1. SILDENAFIL TAB 20 MG [Suspect]
     Active Substance: SILDENAFIL
     Route: 048
     Dates: start: 201810

REACTIONS (4)
  - Dizziness [None]
  - Gait disturbance [None]
  - Visual impairment [None]
  - Deafness unilateral [None]

NARRATIVE: CASE EVENT DATE: 20191014
